FAERS Safety Report 7440293-X (Version None)
Quarter: 2011Q2

REPORT INFORMATION
  Report Type: 
  Country: None (occurrence: None)
  Receive Date: 20110427
  Receipt Date: 20110418
  Transmission Date: 20111010
  Serious: Yes (Death, Other)
  Sender: FDA-Public Use
  Company Number: GXKR2010GB10534

PATIENT
  Age: 41 Year
  Sex: Male

DRUGS (3)
  1. CLOZAPINE [Suspect]
     Dosage: 650 MG/DAY
     Route: 065
  2. SERTRALINE [Suspect]
     Route: 065
  3. AMITRIPTYLINE [Suspect]
     Route: 065

REACTIONS (4)
  - GASTROINTESTINAL HYPOMOTILITY [None]
  - TOXICITY TO VARIOUS AGENTS [None]
  - ABDOMINAL DISTENSION [None]
  - INTESTINAL DILATATION [None]
